FAERS Safety Report 6307574-4 (Version None)
Quarter: 2009Q3

REPORT INFORMATION
  Report Type: 
  Country: None (occurrence: None)
  Receive Date: 20090813
  Receipt Date: 20090804
  Transmission Date: 20100115
  Serious: Yes (Hospitalization, Other)
  Sender: FDA-Public Use
  Company Number: CA-ELI_LILLY_AND_COMPANY-CA200908001301

PATIENT
  Age: 80 Year
  Sex: Female

DRUGS (14)
  1. FORTEO [Suspect]
     Indication: OSTEOPOROSIS
     Dosage: 20 UG, DAILY (1/D)
     Dates: start: 20080221, end: 20090701
  2. FORTEO [Suspect]
     Dosage: 20 UG, DAILY (1/D)
     Dates: start: 20090701
  3. SYNTHROID [Concomitant]
  4. AVAPRO [Concomitant]
  5. PREVACID [Concomitant]
  6. OCUVITE /01053801/ [Concomitant]
  7. ADVAIR HFA [Concomitant]
  8. VITAMIN B-12 [Concomitant]
  9. ASPIRIN                                 /SCH/ [Concomitant]
  10. ANACIN                             /00141001/ [Concomitant]
  11. VITAMIN A [Concomitant]
  12. CALSAN [Concomitant]
  13. APO-FUROSEMIDE [Concomitant]
  14. POTASSIUM CHLORIDE [Concomitant]

REACTIONS (3)
  - ABDOMINAL PAIN [None]
  - PANCREATITIS ACUTE [None]
  - VOMITING [None]
